FAERS Safety Report 13818357 (Version 1)
Quarter: 2017Q3

REPORT INFORMATION
  Report Type: Spontaneous
  Country: US (occurrence: US)
  Receive Date: 20170731
  Receipt Date: 20170731
  Transmission Date: 20171127
  Serious: No
  Sender: FDA-Public Use
  Company Number: US-ROCHE-649169

PATIENT
  Age: 49 Year
  Sex: Female

DRUGS (1)
  1. BONIVA [Suspect]
     Active Substance: IBANDRONATE SODIUM
     Indication: PRODUCT USED FOR UNKNOWN INDICATION
     Dosage: DOSAGE FORM REPORTED AS: 3 MG/3ML PRE-FILLED SYRINGE.
     Route: 065
     Dates: start: 20090422, end: 20090616

REACTIONS (2)
  - No adverse event [Unknown]
  - Medication error [Unknown]
